FAERS Safety Report 7048183-1 (Version None)
Quarter: 2010Q4

REPORT INFORMATION
  Report Type: 
  Country: None (occurrence: None)
  Receive Date: 20101014
  Receipt Date: 20101014
  Transmission Date: 20110411
  Serious: Yes (Hospitalization)
  Sender: FDA-Public Use
  Company Number: None

PATIENT
  Sex: Female
  Weight: 56.6 kg

DRUGS (4)
  1. CYTARABINE [Suspect]
     Dosage: 140 MG
  2. MERCAPTOPURINE [Suspect]
     Dosage: 10825 MG
  3. METHOTREXATE [Suspect]
     Dosage: 227.5 MG
  4. VINCRISTINE SULFATE [Concomitant]

REACTIONS (4)
  - FEBRILE NEUTROPENIA [None]
  - HEADACHE [None]
  - NECK PAIN [None]
  - OROPHARYNGEAL PAIN [None]
